FAERS Safety Report 9201694 (Version 1)
Quarter: 2013Q2

REPORT INFORMATION
  Report Type: Spontaneous
  Country: SE (occurrence: SE)
  Receive Date: 20130401
  Receipt Date: 20130401
  Transmission Date: 20140414
  Serious: Yes (Hospitalization, Other)
  Sender: FDA-Public Use
  Company Number: SE-PFIZER INC-2013023058

PATIENT
  Age: 68 Year
  Sex: Female

DRUGS (10)
  1. SUTENT [Suspect]
     Indication: RENAL CANCER
     Dosage: 37.5 MG, ONCE DAILY
     Dates: start: 20121220, end: 20130115
  2. SUTENT [Suspect]
     Indication: RENAL CANCER
  3. ALVEDON [Concomitant]
  4. COZAAR [Concomitant]
  5. SIMVASTATIN [Concomitant]
  6. FRAGMIN [Concomitant]
  7. MORPHINE [Concomitant]
  8. DOLCONTIN [Concomitant]
  9. NORVASC [Concomitant]
  10. SOTALOL [Concomitant]

REACTIONS (6)
  - Intestinal perforation [Unknown]
  - Thrombocytopenia [Not Recovered/Not Resolved]
  - Skin ulcer [Unknown]
  - Large intestinal ulcer haemorrhage [Not Recovered/Not Resolved]
  - Gastrointestinal inflammation [Unknown]
  - Skin lesion [Unknown]
